FAERS Safety Report 9858368 (Version 5)
Quarter: 2015Q2

REPORT INFORMATION
  Report Type: Spontaneous
  Country: JP (occurrence: JP)
  Receive Date: 20140131
  Receipt Date: 20150626
  Transmission Date: 20150821
  Serious: Yes (Hospitalization, Other)
  Sender: FDA-Public Use
  Company Number: JP-UCBSA-110422

PATIENT
  Age: 30 Year
  Sex: Male

DRUGS (19)
  1. RIZABEN [Concomitant]
     Active Substance: TRANILAST
     Dosage: DAILY DOSE: 1 G
     Route: 048
  2. RENIVACE [Concomitant]
     Active Substance: ENALAPRIL
     Dosage: DAILY DOSE: 1.25 MG
     Route: 048
  3. SOLITA-T3 [Concomitant]
     Active Substance: POTASSIUM CHLORIDE\SODIUM CHLORIDE\SODIUM LACTATE
     Dosage: DAILY DOSE: 8 G
     Route: 048
  4. KEPPRA [Suspect]
     Active Substance: LEVETIRACETAM
     Dosage: 500 MG, 2X/DAY (BID)
     Route: 048
     Dates: start: 20120112, end: 20131201
  5. KEPPRA [Suspect]
     Active Substance: LEVETIRACETAM
     Dosage: DAILY DOSE: 1250 MG
     Route: 048
     Dates: start: 20131202, end: 20131205
  6. KEPPRA [Suspect]
     Active Substance: LEVETIRACETAM
     Dosage: 1750 MG/DAY
     Route: 048
     Dates: start: 20131206, end: 20131214
  7. KEPPRA [Suspect]
     Active Substance: LEVETIRACETAM
     Dosage: 1500 MG/DAY
     Route: 048
     Dates: start: 20131215, end: 20131217
  8. ALFAROL [Concomitant]
     Active Substance: ALFACALCIDOL
     Dosage: DAILY DOSE: 0.2 MICROGRAM
     Route: 048
  9. POTASSIUM CHLORIDE. [Concomitant]
     Active Substance: POTASSIUM CHLORIDE
     Dosage: DAILY DOSE: 1 G
     Route: 048
  10. CLARITH [Concomitant]
     Active Substance: CLARITHROMYCIN
     Dosage: DAILY DOSE: 120 MG
     Route: 048
  11. KEPPRA [Suspect]
     Active Substance: LEVETIRACETAM
     Indication: EPILEPSY
     Dosage: 500 MG, ONCE DAILY (QD)
     Route: 048
     Dates: start: 20120105, end: 20120111
  12. GABAPEN [Concomitant]
     Active Substance: GABAPENTIN
     Dosage: 1400 MG DAILY
     Route: 048
     Dates: start: 20131218
  13. KEPPRA [Suspect]
     Active Substance: LEVETIRACETAM
     Dosage: 1000MG/DAY
     Route: 048
     Dates: start: 20131218, end: 20131219
  14. EXCEGRAN [Suspect]
     Active Substance: ZONISAMIDE
     Indication: EPILEPSY
     Dosage: 200 MG DAILY
     Route: 048
     Dates: start: 20100728, end: 20131204
  15. ENSURE [Concomitant]
     Active Substance: AMINO ACIDS\DEXTROSE\ELECTROLYTES NOS\SOYBEAN OIL\VITAMINS
     Dosage: DAILY DOSE: 750 ML
     Route: 048
  16. BIOFERMIN R [Concomitant]
     Active Substance: BACILLUS SUBTILIS\LACTOBACILLUS ACIDOPHILUS\STREPTOCOCCUS FAECAIS
     Dosage: DAILY DOSE: 3 G
     Route: 048
  17. KEPPRA [Suspect]
     Active Substance: LEVETIRACETAM
     Dosage: 500 MG/DAY
     Route: 048
     Dates: start: 20131220, end: 20131224
  18. DEPAKENE [Suspect]
     Active Substance: VALPROIC ACID
     Indication: EPILEPSY
     Dosage: 550 MG DAILY, TAPERED
     Route: 048
     Dates: start: 1998, end: 20131229
  19. EXCEGRAN [Suspect]
     Active Substance: ZONISAMIDE
     Dosage: 250 MG DAILY
     Route: 048
     Dates: start: 20131205

REACTIONS (4)
  - Fanconi syndrome [Not Recovered/Not Resolved]
  - Urinary tract infection [Recovered/Resolved]
  - Status epilepticus [Recovered/Resolved]
  - Somnolence [Recovered/Resolved]

NARRATIVE: CASE EVENT DATE: 20131201
